FAERS Safety Report 4789544-0 (Version None)
Quarter: 2005Q4

REPORT INFORMATION
  Report Type: 
  Country: None (occurrence: None)
  Receive Date: 20051005
  Receipt Date: 20051005
  Transmission Date: 20060501
  Serious: Yes (Hospitalization)
  Sender: FDA-Public Use
  Company Number: None

PATIENT
  Age: 48 Year
  Sex: Male
  Weight: 106 kg

DRUGS (11)
  1. METHOTREXATE [Suspect]
     Indication: ACUTE LYMPHOCYTIC LEUKAEMIA
     Dosage: 3G/M2/D = 5430 MG IV X 1
     Route: 042
     Dates: start: 20050322
  2. ATORVASTATIN [Concomitant]
  3. LEVOTHYROXINE [Concomitant]
  4. LANSOPRAZOLE [Concomitant]
  5. LOPERAMIDE [Concomitant]
  6. LORAZEPAM [Concomitant]
  7. METOPROLOL [Concomitant]
  8. ALUMINUM HYDROXIDE AND MAGNESIUM TRISILICATE [Concomitant]
  9. PROCHLORPERAZINE [Concomitant]
  10. TEMAZEPAM [Concomitant]
  11. SENNA [Concomitant]

REACTIONS (5)
  - BLOOD CREATININE INCREASED [None]
  - DRUG TOXICITY [None]
  - INJURY [None]
  - RENAL TUBULAR DISORDER [None]
  - VASOCONSTRICTION [None]
